FAERS Safety Report 5775368-4 (Version None)
Quarter: 2008Q2

REPORT INFORMATION
  Report Type: 
  Country: None (occurrence: None)
  Receive Date: 20080612
  Receipt Date: 20080527
  Transmission Date: 20081010
  Serious: Yes (Hospitalization, Other)
  Sender: FDA-Public Use
  Company Number: 2008BI009710

PATIENT
  Age: 37 Year
  Sex: Female
  Weight: 45 kg

DRUGS (7)
  1. TYSABRI [Suspect]
     Indication: MULTIPLE SCLEROSIS
     Dosage: 300 MG;QM;IV
     Route: 042
     Dates: start: 20070924, end: 20080319
  2. IMUREL [Concomitant]
  3. BETAFERON [Concomitant]
  4. AVONEX [Concomitant]
  5. MITHOXANTRONE [Concomitant]
  6. COPAXONE [Concomitant]
  7. CORTICOSTEROIDS [Concomitant]

REACTIONS (12)
  - AUTONOMIC NERVOUS SYSTEM IMBALANCE [None]
  - COGNITIVE DISORDER [None]
  - CONFUSIONAL STATE [None]
  - CSF VIRUS IDENTIFIED [None]
  - DEPRESSION [None]
  - DISORIENTATION [None]
  - HAEMATOCHEZIA [None]
  - HALLUCINATION, VISUAL [None]
  - HERPES ZOSTER [None]
  - OESOPHAGEAL ULCER [None]
  - OESOPHAGITIS [None]
  - SUICIDE ATTEMPT [None]
